FAERS Safety Report 6605229-X (Version None)
Quarter: 2010Q1

REPORT INFORMATION
  Report Type: 
  Country: None (occurrence: None)
  Receive Date: 20100226
  Receipt Date: 20100219
  Transmission Date: 20100710
  Serious: Yes (Hospitalization, Other)
  Sender: FDA-Public Use
  Company Number: US-BAYER-201014594NA

PATIENT
  Age: 88 Year
  Sex: Male

DRUGS (2)
  1. CIPRO [Suspect]
     Indication: PROSTATITIS
  2. REQUIP [Interacting]
     Indication: PARKINSON'S DISEASE
     Dosage: TOTAL DAILY DOSE: 6 MG
     Route: 048
     Dates: start: 20091201

REACTIONS (7)
  - CONFUSIONAL STATE [None]
  - DISORIENTATION [None]
  - DIZZINESS [None]
  - FALL [None]
  - HALLUCINATION [None]
  - HYPERSOMNIA [None]
  - SYNCOPE [None]
